FAERS Safety Report 6185726-4 (Version None)
Quarter: 2009Q2

REPORT INFORMATION
  Report Type: 
  Country: None (occurrence: None)
  Receive Date: 20090511
  Receipt Date: 20090504
  Transmission Date: 20091009
  Serious: Yes (Hospitalization)
  Sender: FDA-Public Use
  Company Number: US-BIOGENIDEC-2009BI000285

PATIENT
  Age: 56 Year
  Sex: Male

DRUGS (8)
  1. TYSABRI [Suspect]
     Indication: MULTIPLE SCLEROSIS
     Route: 042
     Dates: start: 20080826
  2. ZANAFLEX [Concomitant]
     Route: 048
  3. PROVIGIL [Concomitant]
     Route: 048
  4. ZOCOR [Concomitant]
     Route: 048
  5. LISINOPRIL [Concomitant]
     Route: 048
  6. HYDROCHLOROTHIAZIDE [Concomitant]
     Route: 048
  7. PROZAC [Concomitant]
     Route: 048
  8. CLONAZEPAM [Concomitant]
     Route: 048

REACTIONS (1)
  - CERVICAL SPINAL STENOSIS [None]
